FAERS Safety Report 8825663 (Version 1)
Quarter: 2012Q4

REPORT INFORMATION
  Report Type: 
  Country: US (occurrence: US)
  Receive Date: 20121004
  Receipt Date: 20121004
  Transmission Date: 20130627
  Serious: No
  Sender: FDA-Public Use
  Company Number: US-009507513-1210USA002367

PATIENT
  Sex: Female

DRUGS (2)
  1. MIRALAX [Suspect]
     Indication: PRODUCT USED FOR UNKNOWN INDICATION
     Dosage: 1 tsp, tid
     Route: 048
  2. MIRALAX [Suspect]
     Dosage: 1 tsp, Once
     Route: 048
     Dates: start: 20120920

REACTIONS (2)
  - Inappropriate schedule of drug administration [Unknown]
  - Underdose [Unknown]
